FAERS Safety Report 23348406 (Version 1)
Quarter: 2023Q4

REPORT INFORMATION
  Report Type: Report from Study
  Country: US (occurrence: US)
  Receive Date: 20231228
  Receipt Date: 20231228
  Transmission Date: 20240109
  Serious: Yes (Death)
  Sender: FDA-Public Use
  Company Number: US-ABBVIE-5563445

PATIENT
  Sex: Male
  Weight: 88 kg

DRUGS (1)
  1. VENCLEXTA [Suspect]
     Active Substance: VENETOCLAX
     Indication: Chronic lymphocytic leukaemia
     Dosage: TAKE 2 TABLET(S) (200MG) BY MOUTH DAILY?FORM STRENGTH WAS 100 MILLIGRAMS
     Route: 048

REACTIONS (1)
  - Death [Fatal]
